FAERS Safety Report 6115540-7 (Version None)
Quarter: 2009Q1

REPORT INFORMATION
  Report Type: 
  Country: None (occurrence: None)
  Receive Date: 20090313
  Receipt Date: 20090302
  Transmission Date: 20090719
  Serious: No
  Sender: FDA-Public Use
  Company Number: PT-ELI_LILLY_AND_COMPANY-PT200903001608

PATIENT
  Sex: Female

DRUGS (1)
  1. ZYPREXA [Suspect]

REACTIONS (1)
  - LEUKOPENIA [None]
